FAERS Safety Report 19924652 (Version 1)
Quarter: 2021Q4

REPORT INFORMATION
  Report Type: Spontaneous
  Country: SE (occurrence: SE)
  Receive Date: 20211006
  Receipt Date: 20211006
  Transmission Date: 20220303
  Serious: Yes (Life-Threatening)
  Sender: FDA-Public Use
  Company Number: 2021A755199

PATIENT
  Age: 43 Year
  Sex: Female
  Weight: 65 kg

DRUGS (5)
  1. DAPAGLIFLOZIN PROPANEDIOL [Suspect]
     Active Substance: DAPAGLIFLOZIN PROPANEDIOL
     Indication: Type 2 diabetes mellitus
     Dosage: 10 MG 1X1
     Route: 048
     Dates: start: 20160926, end: 20210917
  2. ABASAGLAR TEMPO PEN [Concomitant]
     Dosage: 100 UNITS / ML 30E
     Route: 058
     Dates: start: 20190410, end: 20210917
  3. ATORVASTATIN [Concomitant]
     Active Substance: ATORVASTATIN
     Dosage: 20 MG 1X1
     Route: 048
     Dates: start: 20160311, end: 20210917
  4. IRBESARTAN [Concomitant]
     Active Substance: IRBESARTAN
     Dosage: 75 MG 1X1
     Route: 048
     Dates: start: 20160929, end: 20210917
  5. METFORMIN HYDROCHLORIDE [Concomitant]
     Active Substance: METFORMIN HYDROCHLORIDE
     Dosage: 1000 MG 1X2
     Route: 048
     Dates: start: 20161123, end: 20210917

REACTIONS (1)
  - Ketoacidosis [Not Recovered/Not Resolved]

NARRATIVE: CASE EVENT DATE: 20210917
